FAERS Safety Report 8974541 (Version 1)
Quarter: 2012Q4

REPORT INFORMATION
  Report Type: 
  Country: US (occurrence: US)
  Receive Date: 20121220
  Receipt Date: 20121220
  Transmission Date: 20130627
  Serious: No
  Sender: FDA-Public Use
  Company Number: US-BAYER-2012-129720

PATIENT
  Age: 55 Year
  Sex: Female

DRUGS (23)
  1. CIPRO [Suspect]
  2. ZOLOFT [Concomitant]
     Dosage: 150 mg, QD
  3. STATINS [Concomitant]
     Indication: MUSCLE PAIN
  4. ARMOUR THYROID [Concomitant]
     Dosage: 30 mg, QD
  5. ASA+CHLORPHENAMINE+PHENYLEPHRINE [Concomitant]
     Dosage: 81 mg, QD
  6. DIPHENHYDRAMINE [Concomitant]
     Dosage: 50 mg, HS
  7. HYDROCODONE [Concomitant]
     Dosage: 7.5/32.5, PRN
  8. LISINOPRIL [Concomitant]
     Dosage: 10 mg, dly
  9. MAGNESIUM [Concomitant]
     Dosage: 400 mg, BID
  10. NEXIUM [Concomitant]
     Dosage: 20 mg, QD
  11. TOPROL [Concomitant]
     Dosage: 100 mg, QD
  12. WELCHOL [Concomitant]
     Dosage: 625 mg, BID
     Route: 048
  13. CALCIMATE [Concomitant]
     Dosage: 1030 mg, BID
  14. VITAMIN E [Concomitant]
     Dosage: 400 iu, BID
  15. GARLIC OIL [ALLIUM SATIVUM] [Concomitant]
     Dosage: 1000 mg, BID
  16. MELATONIN [Concomitant]
     Dosage: 10 mg, HS
  17. MULTIVITAMIN PREPARATION + MINERAL SUPPLEMENT [Concomitant]
     Dosage: UNK UNK, QD
     Route: 048
  18. VITAMIN D [Concomitant]
     Dosage: 50000 u, OW
  19. VITAMIN B12 [Concomitant]
     Dosage: UNK UNK, OW
  20. FLEXERIL [Concomitant]
     Dosage: 10 mg, PRN
  21. ELAVIL [Concomitant]
     Dosage: 50 mg, QHS
  22. ERGOCALCIFEROL [Concomitant]
     Dosage: 50000 u, BIW
  23. ZATIN [Concomitant]
     Dosage: 10 mg, QD
     Route: 048

REACTIONS (1)
  - Drug hypersensitivity [None]
